FAERS Safety Report 24999976 (Version 1)
Quarter: 2025Q1

REPORT INFORMATION
  Report Type: Spontaneous
  Country: US (occurrence: US)
  Receive Date: 20250222
  Receipt Date: 20250222
  Transmission Date: 20250409
  Serious: No
  Sender: SANOFI AVENTIS
  Company Number: US-SA-2025SA049792

PATIENT
  Sex: Male
  Weight: 97.73 kg

DRUGS (9)
  1. DUPIXENT [Suspect]
     Active Substance: DUPILUMAB
     Indication: Dermatitis atopic
     Dosage: 300 MG, QOW
     Route: 058
  2. ROSUVASTATIN CALCIUM [Concomitant]
     Active Substance: ROSUVASTATIN CALCIUM
  3. PIMECROLIMUS [Concomitant]
     Active Substance: PIMECROLIMUS
  4. LORATADINE [Concomitant]
     Active Substance: LORATADINE
  5. CLOBETASOL PROPIONATE [Concomitant]
     Active Substance: CLOBETASOL PROPIONATE
  6. TRIAMCINOLONE ACETONIDE [Concomitant]
     Active Substance: TRIAMCINOLONE ACETONIDE
  7. VALACYCLOVIR [Concomitant]
     Active Substance: VALACYCLOVIR HYDROCHLORIDE
  8. ADBRY [Concomitant]
     Active Substance: TRALOKINUMAB-LDRM
  9. PREDNISONE [Concomitant]
     Active Substance: PREDNISONE

REACTIONS (1)
  - Drug ineffective [Unknown]
